FAERS Safety Report 12423405 (Version 1)
Quarter: 2016Q2

REPORT INFORMATION
  Report Type: Spontaneous
  Country: US (occurrence: None)
  Receive Date: 20160531
  Receipt Date: 20160531
  Transmission Date: 20160815
  Serious: Yes (Other)
  Sender: FDA-Public Use
  Company Number: None

PATIENT
  Age: 38 Year
  Sex: Female
  Weight: 73.94 kg

DRUGS (7)
  1. VITAMIN D3 [Concomitant]
     Active Substance: CHOLECALCIFEROL
  2. ZYRTEC [Concomitant]
     Active Substance: CETIRIZINE HYDROCHLORIDE
  3. PRENATAL VITAMINS [Concomitant]
     Active Substance: VITAMINS
  4. LEVOTHYROXINE. [Concomitant]
     Active Substance: LEVOTHYROXINE
  5. DIGESTIVE ENZYMES [Concomitant]
     Active Substance: UNSPECIFIED INGREDIENT
  6. MOTRIN IB [Concomitant]
     Active Substance: IBUPROFEN
  7. AZITHROMYCIN TABLETS, USP, 250 MG [Suspect]
     Active Substance: AZITHROMYCIN ANHYDROUS
     Indication: PHARYNGITIS STREPTOCOCCAL
     Dosage: 6 TABLET (S) 2 DAY 1; 1 4 DAYS TAKEN BY MOUTH
     Route: 048
     Dates: start: 20160526, end: 20160530

REACTIONS (4)
  - Fatigue [None]
  - Nausea [None]
  - Tachycardia [None]
  - Arrhythmia [None]

NARRATIVE: CASE EVENT DATE: 20160526
